FAERS Safety Report 9703320 (Version 2)
Quarter: 2013Q4

REPORT INFORMATION
  Report Type: Report from Study
  Country: JP (occurrence: JP)
  Receive Date: 20131122
  Receipt Date: 20131210
  Transmission Date: 20140711
  Serious: Yes (Hospitalization)
  Sender: FDA-Public Use
  Company Number: JP-ROCHE-1301509

PATIENT
  Age: 57 Year
  Sex: Male
  Weight: 53.3 kg

DRUGS (29)
  1. TRASTUZUMAB [Suspect]
     Indication: HER-2 POSITIVE GASTRIC CANCER
     Dosage: MOST RECENT DOSE ON: 29/OCT/2013
     Route: 042
     Dates: start: 20130822
  2. TRASTUZUMAB [Suspect]
     Dosage: MOST RECENT DOSE ON 29/OCT/2013
     Route: 042
  3. CAPECITABINE [Suspect]
     Indication: HER-2 POSITIVE GASTRIC CANCER
     Route: 048
     Dates: start: 20130822
  4. CAPECITABINE [Suspect]
     Route: 048
     Dates: end: 20131108
  5. CISPLATIN [Suspect]
     Indication: GASTRIC CANCER
     Route: 042
     Dates: start: 20130822, end: 20131029
  6. AMLODIN [Suspect]
     Indication: HYPERTENSION
     Route: 048
     Dates: start: 1993, end: 20131102
  7. BLOPRESS [Concomitant]
     Indication: HYPERTENSION
     Route: 048
     Dates: start: 2013
  8. RABEPRAZOLE [Concomitant]
     Indication: HAEMORRHAGE PROPHYLAXIS
     Route: 048
     Dates: start: 20130703
  9. FEBURIC [Concomitant]
     Indication: HYPERURICAEMIA
     Route: 048
     Dates: start: 1993
  10. LIVALO [Concomitant]
     Indication: HYPERLIPIDAEMIA
     Route: 065
     Dates: start: 1993
  11. ITOROL [Concomitant]
     Indication: ARRHYTHMIA
     Route: 048
     Dates: start: 1993
  12. SODIUM CHLORIDE [Concomitant]
     Route: 065
     Dates: start: 20131009
  13. SODIUM CHLORIDE [Concomitant]
     Route: 065
     Dates: start: 20131029
  14. MAGNESIUM SULFATE [Concomitant]
     Route: 065
     Dates: start: 20131007, end: 20131009
  15. MAGNESIUM SULFATE [Concomitant]
     Route: 065
     Dates: start: 20131029, end: 20131029
  16. GRANISETRON [Concomitant]
     Indication: PROPHYLAXIS OF NAUSEA AND VOMITING
     Route: 065
     Dates: start: 20131007, end: 20131009
  17. GRANISETRON [Concomitant]
     Route: 065
     Dates: start: 20131029, end: 20131029
  18. DEXART [Concomitant]
     Indication: PROPHYLAXIS OF NAUSEA AND VOMITING
     Route: 042
     Dates: start: 20131007, end: 20131007
  19. DEXART [Concomitant]
     Route: 042
     Dates: start: 20131008, end: 20131009
  20. DEXART [Concomitant]
     Route: 042
     Dates: start: 20131029, end: 20131029
  21. DEXART [Concomitant]
     Route: 042
     Dates: start: 20131030, end: 20131031
  22. ASPARA POTASSIUM [Concomitant]
     Indication: PROPHYLAXIS
     Route: 065
     Dates: start: 20131009
  23. EMEND [Concomitant]
     Indication: PROPHYLAXIS OF NAUSEA AND VOMITING
     Route: 048
     Dates: start: 20131007, end: 20131007
  24. EMEND [Concomitant]
     Route: 048
     Dates: start: 20131008, end: 20131009
  25. EMEND [Concomitant]
     Route: 048
     Dates: start: 20131029, end: 20131029
  26. EMEND [Concomitant]
     Route: 048
     Dates: start: 20131030, end: 20131031
  27. LASIX [Concomitant]
     Indication: PROPHYLAXIS
     Route: 065
     Dates: start: 20131029, end: 20131029
  28. LASIX [Concomitant]
     Route: 065
     Dates: start: 20131007, end: 20131007
  29. PERTUZUMAB [Suspect]
     Indication: HER-2 POSITIVE GASTRIC CANCER
     Dosage: LAST DOSE PRIOR TO SAE: 29/OCT/2013
     Route: 042
     Dates: start: 20130822

REACTIONS (2)
  - Prinzmetal angina [Recovering/Resolving]
  - Orthostatic hypotension [Recovered/Resolved]
